FAERS Safety Report 19824603 (Version 1)
Quarter: 2021Q3

REPORT INFORMATION
  Report Type: Spontaneous
  Country: GB (occurrence: GB)
  Receive Date: 20210914
  Receipt Date: 20210914
  Transmission Date: 20211014
  Serious: Yes (Death, Other)
  Sender: FDA-Public Use
  Company Number: GB-SUN PHARMACEUTICAL INDUSTRIES LTD-2021RR-311104

PATIENT
  Age: 54 Year
  Sex: Female

DRUGS (6)
  1. ZOLADEX [Suspect]
     Active Substance: GOSERELIN ACETATE
     Indication: METASTASES TO BREAST
     Dosage: UNK
     Route: 065
  2. EXEMESTANE. [Suspect]
     Active Substance: EXEMESTANE
     Indication: METASTASES TO BREAST
     Dosage: UNK
     Route: 065
  3. FULVESTRANT. [Suspect]
     Active Substance: FULVESTRANT
     Indication: METASTASES TO BREAST
     Dosage: 500 MILLIGRAM INJECTION
     Route: 030
  4. ADEMACICLIB [Suspect]
     Active Substance: ABEMACICLIB
     Indication: METASTASES TO BREAST
     Dosage: 150 MILLIGRAM, DAILY, TWICE
     Route: 065
  5. LETROZOLE. [Suspect]
     Active Substance: LETROZOLE
     Indication: METASTASES TO BREAST
     Dosage: UNK
     Route: 065
  6. TAMOXIFEN [Suspect]
     Active Substance: TAMOXIFEN
     Indication: METASTASES TO BREAST
     Dosage: UNK
     Route: 065

REACTIONS (4)
  - Hepatic failure [Fatal]
  - Brain oedema [Fatal]
  - Disease progression [Unknown]
  - Thrombosis [Unknown]
